FAERS Safety Report 7229697-8 (Version None)
Quarter: 2011Q1

REPORT INFORMATION
  Report Type: 
  Country: None (occurrence: None)
  Receive Date: 20110117
  Receipt Date: 20110106
  Transmission Date: 20110831
  Serious: Yes (Hospitalization)
  Sender: FDA-Public Use
  Company Number: JP-AMGEN-JPNCT2011002642

PATIENT

DRUGS (12)
  1. FLUOROURACIL [Suspect]
     Dosage: 3700 MG, Q2WK
     Route: 041
     Dates: start: 20100907
  2. OXALIPLATIN [Suspect]
     Indication: COLORECTAL CANCER
     Dosage: 130 MG, Q2WK
     Route: 041
     Dates: start: 20100907
  3. FLUOROURACIL [Suspect]
     Indication: COLORECTAL CANCER
     Dosage: 600 MG, Q2WK
     Route: 040
     Dates: start: 20100907
  4. MINOMYCIN [Concomitant]
     Dosage: UNK
     Route: 048
  5. PANITUMUMAB [Suspect]
     Indication: COLORECTAL CANCER
     Dosage: UNK UNK, Q2WK
     Route: 041
     Dates: start: 20100907
  6. BESOFTEN [Concomitant]
     Dosage: UNK
     Route: 062
  7. CALCIUM LEVOFOLINATE [Concomitant]
     Indication: COLORECTAL CANCER
     Dosage: 300 MG, Q2WK
     Route: 041
     Dates: start: 20100907
  8. ALOXI [Concomitant]
     Dosage: UNK
     Route: 042
  9. DECADRON [Concomitant]
     Dosage: UNK
     Route: 048
  10. PROTECADIN [Concomitant]
     Dosage: UNK
     Route: 048
  11. PYDOXAL [Concomitant]
     Dosage: UNK
     Route: 048
  12. RINDERON-VG [Concomitant]
     Dosage: UNK
     Route: 062

REACTIONS (2)
  - DRY SKIN [None]
  - GRANULOCYTOPENIA [None]
